FAERS Safety Report 20044158 (Version 1)
Quarter: 2021Q4

REPORT INFORMATION
  Report Type: Spontaneous
  Country: US (occurrence: US)
  Receive Date: 20211108
  Receipt Date: 20211108
  Transmission Date: 20220303
  Serious: Yes (Other)
  Sender: FDA-Public Use
  Company Number: US-UPSHER-SMITH LABORATORIES, LLC-2021USL00772

PATIENT
  Age: 51 Year
  Sex: Male

DRUGS (4)
  1. TESTOSTERONE [Suspect]
     Active Substance: TESTOSTERONE
     Indication: Hypogonadism
     Dosage: 75 MG, 2X/YEAR
     Route: 058
  2. NIACIN [Concomitant]
     Active Substance: NIACIN
     Route: 065
  3. OMEGA-3 FATTY ACIDS [Concomitant]
     Active Substance: OMEGA-3 FATTY ACIDS
     Route: 065
  4. GLUCOSAMINE [Concomitant]
     Active Substance: GLUCOSAMINE
     Route: 065

REACTIONS (1)
  - Dermatitis [Recovered/Resolved]
